FAERS Safety Report 9645698 (Version 1)
Quarter: 2013Q4

REPORT INFORMATION
  Report Type: Spontaneous
  Country: CY (occurrence: CY)
  Receive Date: 20131025
  Receipt Date: 20131025
  Transmission Date: 20140711
  Serious: Yes (Death, Hospitalization)
  Sender: FDA-Public Use
  Company Number: CY-JNJFOC-20131011185

PATIENT
  Sex: Male

DRUGS (1)
  1. ZYTIGA [Suspect]
     Indication: PROSTATE CANCER METASTATIC
     Dosage: 250 MG X 4 TABLETS PER DAY
     Route: 048
     Dates: start: 201303, end: 201309

REACTIONS (2)
  - Prostate cancer metastatic [Fatal]
  - Hospitalisation [Unknown]
